FAERS Safety Report 4578255-2 (Version None)
Quarter: 2005Q1

REPORT INFORMATION
  Report Type: 
  Country: None (occurrence: None)
  Receive Date: 20050211
  Receipt Date: 20050203
  Transmission Date: 20050727
  Serious: Yes (Hospitalization)
  Sender: FDA-Public Use
  Company Number: US-JNJFOC-20050201718

PATIENT
  Sex: Female
  Weight: 157.4 kg

DRUGS (3)
  1. DURAGESIC [Suspect]
     Route: 062
  2. PERCOCET [Concomitant]
     Route: 049
  3. PERCOCET [Concomitant]
     Indication: THERAPEUTIC RESPONSE DECREASED
     Dosage: PRN
     Route: 049

REACTIONS (1)
  - PNEUMONIA [None]
